FAERS Safety Report 16749395 (Version 1)
Quarter: 2019Q3

REPORT INFORMATION
  Report Type: Spontaneous
  Country: US (occurrence: US)
  Receive Date: 20190710
  Receipt Date: 20190710
  Transmission Date: 20191005
  Serious: Yes (Hospitalization)
  Sender: FDA-Public Use
  Company Number: None

PATIENT
  Age: 59 Year
  Sex: Male

DRUGS (17)
  1. BUPROPN HCL [Concomitant]
     Active Substance: BUPROPION HYDROCHLORIDE
  2. CEFADROXIL. [Concomitant]
     Active Substance: CEFADROXIL
  3. METHYLPHENID [Concomitant]
     Active Substance: METHYLPHENIDATE
  4. SPIRONOLACT [Concomitant]
     Active Substance: SPIRONOLACTONE
  5. LOSARTAN/HCT [Concomitant]
     Active Substance: HYDROCHLOROTHIAZIDE\LOSARTAN POTASSIUM
  6. ATORVASTATIN [Concomitant]
     Active Substance: ATORVASTATIN
  7. LIDOCAINE PAD [Concomitant]
  8. MIRTAZAPINE. [Concomitant]
     Active Substance: MIRTAZAPINE
  9. TADALAFIL. [Concomitant]
     Active Substance: TADALAFIL
  10. TESTOST CYP [Concomitant]
     Active Substance: TESTOSTERONE CYPIONATE
  11. XELJANZ XR [Suspect]
     Active Substance: TOFACITINIB CITRATE
     Route: 048
     Dates: start: 20181214
  12. TAMSULOSIN [Concomitant]
     Active Substance: TAMSULOSIN
  13. HYDROXYCHLOR [Concomitant]
     Active Substance: HYDROXYCHLOROQUINE
  14. CLONIDINE. [Concomitant]
     Active Substance: CLONIDINE
  15. CARVEDILOL. [Concomitant]
     Active Substance: CARVEDILOL
  16. FOLIC ACID. [Concomitant]
     Active Substance: FOLIC ACID
  17. LYRICA [Concomitant]
     Active Substance: PREGABALIN

REACTIONS (1)
  - Surgery [None]

NARRATIVE: CASE EVENT DATE: 20190709
